FAERS Safety Report 16334242 (Version 1)
Quarter: 2019Q2

REPORT INFORMATION
  Report Type: Spontaneous
  Country: FR (occurrence: FR)
  Receive Date: 20190520
  Receipt Date: 20190520
  Transmission Date: 20190711
  Serious: Yes (Death, Other)
  Sender: FDA-Public Use
  Company Number: FR-IMPAX LABORATORIES, LLC-2019-IPXL-00965

PATIENT
  Age: 76 Year
  Sex: Male

DRUGS (3)
  1. PHENYLEPHRINE [Suspect]
     Active Substance: PHENYLEPHRINE\PHENYLEPHRINE HYDROCHLORIDE
     Indication: HYPERSENSITIVITY
     Dosage: UNK
     Route: 042
  2. ADRENACLICK [Suspect]
     Active Substance: EPINEPHRINE
     Indication: HYPERSENSITIVITY
     Dosage: UNK
     Route: 042
  3. EPHEDRINE. [Suspect]
     Active Substance: EPHEDRINE
     Indication: HYPERSENSITIVITY
     Dosage: UNK
     Route: 042

REACTIONS (2)
  - Cardiac arrest [Fatal]
  - Drug ineffective [Unknown]
